FAERS Safety Report 20426393 (Version 1)
Quarter: 2022Q1

REPORT INFORMATION
  Report Type: Report from Study
  Country: US (occurrence: US)
  Receive Date: 20220204
  Receipt Date: 20220204
  Transmission Date: 20220424
  Serious: No
  Sender: FDA-Public Use
  Company Number: US-EXELIXIS-CABO-21042827

PATIENT
  Age: 71 Year
  Sex: Male

DRUGS (6)
  1. CABOMETYX [Suspect]
     Active Substance: CABOZANTINIB S-MALATE
     Indication: Renal cancer
     Dosage: 60 MG, QD
     Route: 048
     Dates: start: 20210715
  2. XANAX [Concomitant]
     Active Substance: ALPRAZOLAM
  3. AMLODIPINE [Concomitant]
     Active Substance: AMLODIPINE BESYLATE
  4. KLONOPIN [Concomitant]
     Active Substance: CLONAZEPAM
  5. DIOVAN [Concomitant]
     Active Substance: VALSARTAN
  6. COREG [Concomitant]
     Active Substance: CARVEDILOL

REACTIONS (3)
  - Blood pressure diastolic increased [Not Recovered/Not Resolved]
  - Dysphonia [Unknown]
  - Abdominal pain upper [Recovered/Resolved]

NARRATIVE: CASE EVENT DATE: 20210720
